FAERS Safety Report 4870153-X (Version None)
Quarter: 2005Q4

REPORT INFORMATION
  Report Type: 
  Country: None (occurrence: None)
  Receive Date: 20051229
  Receipt Date: 20051229
  Transmission Date: 20060501
  Serious: Yes (Hospitalization)
  Sender: FDA-Public Use
  Company Number: None

PATIENT
  Age: 58 Year
  Sex: Male
  Weight: 73.9363 kg

DRUGS (1)
  1. WARFARIN    2MG [Suspect]
     Indication: ATRIAL FIBRILLATION
     Dosage: 10MG   ALTERNATING WITH  8MG EVERY OTHER DAY  PO
     Route: 048
     Dates: start: 20050922, end: 20051228

REACTIONS (3)
  - INTERNATIONAL NORMALISED RATIO INCREASED [None]
  - MELAENA [None]
  - NAUSEA [None]
